FAERS Safety Report 8449853-0 (Version None)
Quarter: 2012Q2

REPORT INFORMATION
  Report Type: 
  Country: None (occurrence: None)
  Receive Date: 20120614
  Receipt Date: 20120614
  Transmission Date: 20120825
  Serious: Yes (Hospitalization)
  Sender: FDA-Public Use
  Company Number: None

PATIENT
  Age: 49 Year
  Sex: Female
  Weight: 100.6985 kg

DRUGS (1)
  1. PRADAXA [Suspect]
     Indication: ATRIAL FIBRILLATION
     Dosage: 150MG, 2 TIMES/DAY, PO
     Route: 048
     Dates: start: 20111001, end: 20120611

REACTIONS (3)
  - AMENORRHOEA [None]
  - ANAEMIA [None]
  - VAGINAL HAEMORRHAGE [None]
